FAERS Safety Report 7011794-3 (Version None)
Quarter: 2010Q3

REPORT INFORMATION
  Report Type: 
  Country: None (occurrence: None)
  Receive Date: 20100923
  Receipt Date: 20090720
  Transmission Date: 20110219
  Serious: No
  Sender: FDA-Public Use
  Company Number: US-WYE-H09779609

PATIENT
  Sex: Female

DRUGS (9)
  1. PREMARIN [Suspect]
     Indication: HORMONE REPLACEMENT THERAPY
     Route: 048
  2. RESTORIL [Concomitant]
  3. CARDIZEM CD [Concomitant]
  4. ACIPHEX [Concomitant]
  5. PRAVACHOL [Concomitant]
  6. ACTOS [Concomitant]
  7. METFORMIN [Concomitant]
  8. VAGIFEM [Concomitant]
  9. HYDROCHLOROTHIAZIDE [Concomitant]

REACTIONS (2)
  - DRUG INEFFECTIVE [None]
  - PRODUCT QUALITY ISSUE [None]
